FAERS Safety Report 25454518 (Version 2)
Quarter: 2025Q3

REPORT INFORMATION
  Report Type: Spontaneous
  Country: EU (occurrence: EU)
  Receive Date: 20250619
  Receipt Date: 20250709
  Transmission Date: 20251021
  Serious: Yes (Other)
  Sender: AUROBINDO
  Company Number: EU-AUROBINDO-AUR-APL-2025-023467

PATIENT
  Age: 39 Year
  Sex: Female

DRUGS (3)
  1. RAMIPRIL [Suspect]
     Active Substance: RAMIPRIL
     Indication: Focal segmental glomerulosclerosis
     Route: 065
  2. PREDNISONE [Suspect]
     Active Substance: PREDNISONE
     Indication: Focal segmental glomerulosclerosis
     Route: 065
  3. IRON [Concomitant]
     Active Substance: IRON
     Indication: Anaemia
     Route: 048

REACTIONS (3)
  - Drug intolerance [Recovered/Resolved]
  - Drug ineffective [Unknown]
  - Disease progression [Unknown]
